FAERS Safety Report 22827154 (Version 2)
Quarter: 2025Q2

REPORT INFORMATION
  Report Type: Spontaneous
  Country: FR (occurrence: FR)
  Receive Date: 20230816
  Receipt Date: 20250604
  Transmission Date: 20250717
  Serious: Yes (Other)
  Sender: MYLAN
  Company Number: None

PATIENT
  Age: 42 Year
  Sex: Male

DRUGS (36)
  1. PAROXETINE [Suspect]
     Active Substance: PAROXETINE
     Indication: Product used for unknown indication
  2. PAROXETINE [Suspect]
     Active Substance: PAROXETINE
     Route: 048
  3. PAROXETINE [Suspect]
     Active Substance: PAROXETINE
     Route: 048
  4. PAROXETINE [Suspect]
     Active Substance: PAROXETINE
  5. ZYPREXA [Suspect]
     Active Substance: OLANZAPINE
     Indication: Product used for unknown indication
  6. ZYPREXA [Suspect]
     Active Substance: OLANZAPINE
     Route: 048
  7. ZYPREXA [Suspect]
     Active Substance: OLANZAPINE
     Route: 048
  8. ZYPREXA [Suspect]
     Active Substance: OLANZAPINE
  9. TERALITHE [Suspect]
     Active Substance: LITHIUM CARBONATE
     Indication: Product used for unknown indication
  10. TERALITHE [Suspect]
     Active Substance: LITHIUM CARBONATE
     Route: 048
  11. TERALITHE [Suspect]
     Active Substance: LITHIUM CARBONATE
     Route: 048
  12. TERALITHE [Suspect]
     Active Substance: LITHIUM CARBONATE
  13. TRIMEPRAZINE [Suspect]
     Active Substance: TRIMEPRAZINE
     Indication: Product used for unknown indication
  14. TRIMEPRAZINE [Suspect]
     Active Substance: TRIMEPRAZINE
     Route: 048
  15. TRIMEPRAZINE [Suspect]
     Active Substance: TRIMEPRAZINE
     Route: 048
  16. TRIMEPRAZINE [Suspect]
     Active Substance: TRIMEPRAZINE
  17. LEVOMEPROMAZINE [Suspect]
     Active Substance: LEVOMEPROMAZINE
     Indication: Product used for unknown indication
  18. LEVOMEPROMAZINE [Suspect]
     Active Substance: LEVOMEPROMAZINE
     Route: 048
  19. LEVOMEPROMAZINE [Suspect]
     Active Substance: LEVOMEPROMAZINE
     Route: 048
  20. LEVOMEPROMAZINE [Suspect]
     Active Substance: LEVOMEPROMAZINE
  21. BROMAZEPAM [Suspect]
     Active Substance: BROMAZEPAM
     Indication: Product used for unknown indication
  22. BROMAZEPAM [Suspect]
     Active Substance: BROMAZEPAM
     Route: 048
  23. BROMAZEPAM [Suspect]
     Active Substance: BROMAZEPAM
     Route: 048
  24. BROMAZEPAM [Suspect]
     Active Substance: BROMAZEPAM
  25. LORMETAZEPAM [Suspect]
     Active Substance: LORMETAZEPAM
     Indication: Product used for unknown indication
  26. LORMETAZEPAM [Suspect]
     Active Substance: LORMETAZEPAM
     Route: 048
  27. LORMETAZEPAM [Suspect]
     Active Substance: LORMETAZEPAM
     Route: 048
  28. LORMETAZEPAM [Suspect]
     Active Substance: LORMETAZEPAM
  29. OXAZEPAM [Suspect]
     Active Substance: OXAZEPAM
     Indication: Product used for unknown indication
  30. OXAZEPAM [Suspect]
     Active Substance: OXAZEPAM
     Route: 048
  31. OXAZEPAM [Suspect]
     Active Substance: OXAZEPAM
     Route: 048
  32. OXAZEPAM [Suspect]
     Active Substance: OXAZEPAM
  33. BROMAZEPAM [Suspect]
     Active Substance: BROMAZEPAM
     Indication: Product used for unknown indication
  34. BROMAZEPAM [Suspect]
     Active Substance: BROMAZEPAM
     Route: 048
  35. BROMAZEPAM [Suspect]
     Active Substance: BROMAZEPAM
     Route: 048
  36. BROMAZEPAM [Suspect]
     Active Substance: BROMAZEPAM

REACTIONS (2)
  - Drug use disorder [Not Recovered/Not Resolved]
  - Drug abuse [Unknown]

NARRATIVE: CASE EVENT DATE: 20230101
